FAERS Safety Report 9018560 (Version 1)
Quarter: 2013Q1

REPORT INFORMATION
  Report Type: Spontaneous
  Country: US (occurrence: None)
  Receive Date: 20130111
  Receipt Date: 20130111
  Transmission Date: 20140127
  Serious: Yes (Death)
  Sender: FDA-Public Use
  Company Number: None

PATIENT
  Age: 73 Year
  Sex: Male

DRUGS (3)
  1. AMIODARONE [Suspect]
     Dates: start: 200903, end: 200909
  2. GLYBURIDE [Suspect]
  3. ACTOS [Suspect]

REACTIONS (28)
  - Drug-induced liver injury [None]
  - Abdominal pain [None]
  - Jaundice [None]
  - Cholecystitis acute [None]
  - Hepatic fibrosis [None]
  - Hepatitis cholestatic [None]
  - Renal failure [None]
  - Ascites [None]
  - Pneumobilia [None]
  - Gastrointestinal haemorrhage [None]
  - General physical health deterioration [None]
  - Multi-organ failure [None]
  - Eyelid ptosis [None]
  - Mucosal dryness [None]
  - Candida infection [None]
  - Musculoskeletal stiffness [None]
  - Cardiac murmur [None]
  - Oedema peripheral [None]
  - Decubitus ulcer [None]
  - Muscular weakness [None]
  - Muscle atrophy [None]
  - Ecchymosis [None]
  - Sepsis [None]
  - Haematocrit decreased [None]
  - Platelet count decreased [None]
  - Malnutrition [None]
  - Incorrect dose administered [None]
  - Drug prescribing error [None]
